FAERS Safety Report 12848510 (Version 1)
Quarter: 2016Q4

REPORT INFORMATION
  Report Type: Spontaneous
  Country: US (occurrence: US)
  Receive Date: 20161014
  Receipt Date: 20161014
  Transmission Date: 20170207
  Serious: No
  Sender: FDA-Public Use
  Company Number: US-JNJFOC-20160817362

PATIENT
  Age: 27 Month
  Sex: Male
  Weight: 11.34 kg

DRUGS (1)
  1. CHILDRENS TYLENOL [Suspect]
     Active Substance: ACETAMINOPHEN
     Indication: ACCIDENTAL EXPOSURE TO PRODUCT
     Dosage: 1/4
     Route: 048

REACTIONS (2)
  - Failure of child resistant mechanism for pharmaceutical product [Unknown]
  - Accidental exposure to product by child [Unknown]
